FAERS Safety Report 4835971-2 (Version None)
Quarter: 2005Q4

REPORT INFORMATION
  Report Type: 
  Country: None (occurrence: None)
  Receive Date: 20051123
  Receipt Date: 20051115
  Transmission Date: 20060501
  Serious: Yes (Other)
  Sender: FDA-Public Use
  Company Number: US-JNJFOC-20051104095

PATIENT
  Sex: Female

DRUGS (1)
  1. REMICADE [Suspect]
     Indication: FISTULA
     Route: 042

REACTIONS (5)
  - CONDITION AGGRAVATED [None]
  - DYSPNOEA EXERTIONAL [None]
  - FATIGUE [None]
  - LUNG INFILTRATION [None]
  - LUNG NEOPLASM [None]
